FAERS Safety Report 13099359 (Version 1)
Quarter: 2017Q1

REPORT INFORMATION
  Report Type: Spontaneous
  Country: US (occurrence: US)
  Receive Date: 20170109
  Receipt Date: 20170109
  Transmission Date: 20170428
  Serious: No
  Sender: FDA-Public Use
  Company Number: US-PFIZER INC-2017007741

PATIENT
  Age: 49 Year
  Sex: Male
  Weight: 86.18 kg

DRUGS (6)
  1. CALCIUM CITRATE, VITAMIN D [Concomitant]
     Indication: BONE DISORDER
     Dosage: 2 DF, DAILY (2TABLETS EQUAL 500MG/800IU BY MOUTH DAILY)
     Route: 048
  2. SERTRALINE HCL [Suspect]
     Active Substance: SERTRALINE HYDROCHLORIDE
     Indication: DEPRESSION
     Dosage: 50 MG, DAILY
     Route: 048
     Dates: start: 2016
  3. VITAMIN D3 [Concomitant]
     Active Substance: CHOLECALCIFEROL
     Indication: CROHN^S DISEASE
     Dosage: 2000 IU, UNK
  4. TURMERIC /01079602/ [Concomitant]
     Active Substance: TURMERIC
     Indication: CROHN^S DISEASE
     Dosage: 1000 MG, DAILY
     Route: 048
  5. HUMIRA [Concomitant]
     Active Substance: ADALIMUMAB
     Indication: CROHN^S DISEASE
     Dosage: 40 MG, UNK (40MG INJECTION EVERY TWO WEEKS)
     Dates: start: 201403
  6. FISH OIL [Concomitant]
     Active Substance: FISH OIL
     Indication: CARDIAC DISORDER
     Dosage: 750 MG, DAILY
     Route: 048

REACTIONS (1)
  - Laboratory test abnormal [Not Recovered/Not Resolved]

NARRATIVE: CASE EVENT DATE: 20170106
